FAERS Safety Report 7241481-8 (Version None)
Quarter: 2011Q1

REPORT INFORMATION
  Report Type: 
  Country: None (occurrence: None)
  Receive Date: 20110120
  Receipt Date: 20110120
  Transmission Date: 20110831
  Serious: Yes (Hospitalization)
  Sender: FDA-Public Use
  Company Number: None

PATIENT
  Sex: Female

DRUGS (14)
  1. RAD001 EVEROLIMUS [Suspect]
     Indication: COLORECTAL CANCER
     Dosage: 10 MG PO QD
     Route: 048
     Dates: start: 20100903, end: 20101223
  2. AV-951 [Suspect]
     Indication: COLORECTAL CANCER
     Dosage: 1.5 MG PO QD
     Route: 048
     Dates: start: 20100903, end: 20101223
  3. HYDROCHLOROTHIAZIDE [Concomitant]
  4. VENTOLIN HFA [Concomitant]
  5. COMPAZINE [Concomitant]
  6. DILAUDID [Concomitant]
  7. MIRALAX [Concomitant]
  8. MULTI-VITAMIN [Concomitant]
  9. TRAMADOL HCL [Concomitant]
  10. K PHOS NEUTRAL [Concomitant]
  11. KCL SLOW RELEASE [Concomitant]
  12. AMLODIPINE [Concomitant]
  13. FERROUS SULFATE TAB [Concomitant]
  14. OMEPRAZOLE [Concomitant]

REACTIONS (2)
  - TACHYCARDIA [None]
  - PNEUMOTHORAX [None]
